FAERS Safety Report 10048992 (Version 2)
Quarter: 2016Q1

REPORT INFORMATION
  Report Type: Spontaneous
  Country: US (occurrence: US)
  Receive Date: 20140331
  Receipt Date: 20160215
  Transmission Date: 20160525
  Serious: Yes (Death, Other)
  Sender: FDA-Public Use
  Company Number: US-GE HEALTHCARE MEDICAL DIAGNOSTICS-OSCN-PR-1403L-0079

PATIENT
  Age: 14 Year
  Sex: Male

DRUGS (13)
  1. FOLIC ACID. [Concomitant]
     Active Substance: FOLIC ACID
  2. ALBUTEROL. [Concomitant]
     Active Substance: ALBUTEROL
  3. VITAMINS [Concomitant]
     Active Substance: VITAMINS
  4. CALCITRIOL. [Concomitant]
     Active Substance: CALCITRIOL
  5. ERYTHROPOIETIN [Concomitant]
     Active Substance: ERYTHROPOIETIN
  6. FLOVENT [Concomitant]
     Active Substance: FLUTICASONE PROPIONATE
  7. SILDENAFIL. [Concomitant]
     Active Substance: SILDENAFIL
  8. ASPIRIN. [Concomitant]
     Active Substance: ASPIRIN
  9. GADOLINIUM (UNSPECIFIED) [Suspect]
     Active Substance: GADOLINIUM
     Indication: PRODUCT USED FOR UNKNOWN INDICATION
     Dosage: DOSE NOT REPORTED
     Route: 065
  10. GADOLINIUM (UNSPECIFIED) [Suspect]
     Active Substance: GADOLINIUM
     Indication: DIAGNOSTIC PROCEDURE
  11. PROCARDIA XL [Concomitant]
     Active Substance: NIFEDIPINE
  12. IRON [Concomitant]
     Active Substance: IRON
  13. FENTANYL. [Concomitant]
     Active Substance: FENTANYL

REACTIONS (6)
  - Myocardial calcification [Unknown]
  - Arteriosclerosis coronary artery [Unknown]
  - Mitral valve calcification [Unknown]
  - Nephrogenic systemic fibrosis [Fatal]
  - Aortic calcification [Unknown]
  - Pulmonary hypertension [Unknown]
